FAERS Safety Report 6869035-3 (Version None)
Quarter: 2010Q3

REPORT INFORMATION
  Report Type: 
  Country: None (occurrence: None)
  Receive Date: 20100722
  Receipt Date: 20080630
  Transmission Date: 20110219
  Serious: No
  Sender: FDA-Public Use
  Company Number: US-PFIZER INC-2008056806

PATIENT
  Sex: Female
  Weight: 56.8 kg

DRUGS (6)
  1. CHANTIX [Suspect]
     Indication: SMOKING CESSATION THERAPY
     Route: 048
     Dates: start: 20060101, end: 20060101
  2. ASACOL [Concomitant]
     Indication: GASTRIC DISORDER
  3. ORAL CONTRACEPTIVE NOS [Concomitant]
  4. LEXAPRO [Concomitant]
  5. BUPRENORPHINE HCL AND NALOXONE HCL [Concomitant]
  6. ALL OTHER THERAPEUTIC PRODUCTS [Concomitant]

REACTIONS (1)
  - DEPRESSION [None]
